FAERS Safety Report 19483033 (Version 1)
Quarter: 2021Q3

REPORT INFORMATION
  Report Type: Spontaneous
  Country: CO (occurrence: CO)
  Receive Date: 20210701
  Receipt Date: 20210701
  Transmission Date: 20211014
  Serious: Yes (Death)
  Sender: FDA-Public Use
  Company Number: CO-GUERBET-CO-20210027

PATIENT
  Age: 4 Month
  Sex: Female
  Weight: 7 kg

DRUGS (2)
  1. LIPIODOL [Suspect]
     Active Substance: ETHIODIZED OIL
     Indication: SCLEROTHERAPY
     Route: 065
     Dates: start: 20210413, end: 20210413
  2. HISTOACRYL [Concomitant]
     Active Substance: ENBUCRILATE
     Indication: SCLEROTHERAPY
     Route: 065

REACTIONS (3)
  - Intracardiac thrombus [Fatal]
  - Cerebral ischaemia [Fatal]
  - Multiple organ dysfunction syndrome [Fatal]

NARRATIVE: CASE EVENT DATE: 20210413
